FAERS Safety Report 16178304 (Version 1)
Quarter: 2019Q2

REPORT INFORMATION
  Report Type: Spontaneous
  Country: RO (occurrence: RO)
  Receive Date: 20190410
  Receipt Date: 20190410
  Transmission Date: 20190711
  Serious: Yes (Life-Threatening, Hospitalization, Disabling, Other)
  Sender: FDA-Public Use
  Company Number: RO-ABBVIE-19K-135-2737740-00

PATIENT
  Age: 78 Year
  Sex: Male
  Weight: 90 kg

DRUGS (1)
  1. HUMIRA [Suspect]
     Active Substance: ADALIMUMAB
     Indication: PSORIASIS
     Route: 058
     Dates: start: 201605, end: 201810

REACTIONS (2)
  - Dysphagia [Recovered/Resolved with Sequelae]
  - Laryngeal cancer [Recovered/Resolved with Sequelae]

NARRATIVE: CASE EVENT DATE: 201810
